FAERS Safety Report 9622068 (Version 1)
Quarter: 2013Q4

REPORT INFORMATION
  Report Type: Spontaneous
  Country: US (occurrence: US)
  Receive Date: 20131015
  Receipt Date: 20131015
  Transmission Date: 20140711
  Serious: No
  Sender: FDA-Public Use
  Company Number: US-PURDUE-USA-2012-0085709

PATIENT
  Sex: Female

DRUGS (1)
  1. BUTRANS [Suspect]
     Indication: SPINAL CORD INJURY
     Dosage: 20 MCG/HR, UNK

REACTIONS (10)
  - Application site rash [Not Recovered/Not Resolved]
  - Application site pruritus [Not Recovered/Not Resolved]
  - Application site pain [Recovered/Resolved]
  - Lip swelling [Recovered/Resolved]
  - Oropharyngeal pain [Recovered/Resolved]
  - Dizziness [Recovered/Resolved]
  - Malaise [Recovered/Resolved]
  - Device leakage [Unknown]
  - Drug effect increased [Unknown]
  - Application site discharge [Unknown]
